FAERS Safety Report 7228701-0 (Version None)
Quarter: 2011Q1

REPORT INFORMATION
  Report Type: 
  Country: None (occurrence: None)
  Receive Date: 20110117
  Receipt Date: 20110106
  Transmission Date: 20110831
  Serious: No
  Sender: FDA-Public Use
  Company Number: US-BIOGENIDEC-2011BI001445

PATIENT
  Age: 47 Year
  Sex: Male

DRUGS (3)
  1. TYSABRI [Suspect]
     Indication: MULTIPLE SCLEROSIS
     Route: 042
     Dates: start: 20101112
  2. TYSABRI [Suspect]
     Route: 042
     Dates: start: 20080507, end: 20100406
  3. TYSABRI [Suspect]
     Route: 042
     Dates: start: 20050214

REACTIONS (2)
  - BALANCE DISORDER [None]
  - DIPLOPIA [None]
